FAERS Safety Report 21940045 (Version 1)
Quarter: 2023Q1

REPORT INFORMATION
  Report Type: Spontaneous
  Country: US (occurrence: US)
  Receive Date: 20230201
  Receipt Date: 20230201
  Transmission Date: 20230417
  Serious: Yes (Death, Hospitalization)
  Sender: FDA-Public Use
  Company Number: US-STRIDES ARCOLAB LIMITED-2023SP001446

PATIENT
  Age: 69 Year
  Sex: Female

DRUGS (8)
  1. HYDROCORTISONE [Suspect]
     Active Substance: HYDROCORTISONE
     Indication: Pyrexia
     Dosage: UNK, (ADMINISTERED STRESS DOSE)
     Route: 065
  2. HYDROCORTISONE [Suspect]
     Active Substance: HYDROCORTISONE
     Dosage: 100 MILLIGRAM, TID (THREE TIMES A DAY)
     Route: 065
  3. ASPIRIN [Concomitant]
     Active Substance: ASPIRIN
     Indication: Acute myocardial infarction
     Dosage: UNK
     Route: 065
  4. HEPARIN [Concomitant]
     Active Substance: HEPARIN SODIUM
     Indication: Acute myocardial infarction
     Dosage: UNK
     Route: 065
  5. HEPARIN [Concomitant]
     Active Substance: HEPARIN SODIUM
     Dosage: UNK, (INFUSION)
     Route: 065
  6. PRASUGREL [Concomitant]
     Active Substance: PRASUGREL
     Indication: Antiplatelet therapy
     Dosage: UNK
     Route: 065
  7. MILRINONE [Concomitant]
     Active Substance: MILRINONE
     Indication: Cardiogenic shock
     Dosage: UNK
     Route: 065
  8. EPINEPHRINE [Concomitant]
     Active Substance: EPINEPHRINE
     Indication: Pulse absent
     Dosage: UNK
     Route: 065

REACTIONS (10)
  - Acute kidney injury [Fatal]
  - Cardiac failure acute [Fatal]
  - Multiple organ dysfunction syndrome [Fatal]
  - Enterococcal infection [Fatal]
  - Enterococcal bacteraemia [Fatal]
  - Endocarditis [Fatal]
  - Septic embolus [Fatal]
  - Pneumonia [Fatal]
  - Stenotrophomonas infection [Fatal]
  - Septic shock [Fatal]
